FAERS Safety Report 20074331 (Version 3)
Quarter: 2021Q4

REPORT INFORMATION
  Report Type: Spontaneous
  Country: DK (occurrence: DK)
  Receive Date: 20211116
  Receipt Date: 20211123
  Transmission Date: 20220303
  Serious: Yes (Death)
  Sender: FDA-Public Use
  Company Number: DK-CELLTRION HEALTHCARE HUNGARY KFT-2021DK014627

PATIENT
  Age: 40 Year

DRUGS (24)
  1. RITUXIMAB [Suspect]
     Active Substance: RITUXIMAB
     Indication: Myopathy
     Dosage: 900 MG/DOSE
     Route: 065
     Dates: start: 202005
  2. RITUXIMAB [Suspect]
     Active Substance: RITUXIMAB
     Indication: Inflammation
     Dosage: 900 MG/DOSE
     Route: 065
     Dates: start: 202006
  3. PREDNISOLONE [Suspect]
     Active Substance: PREDNISOLONE
     Indication: Muscle necrosis
     Dosage: 75 MG, DAILY
     Dates: start: 201801
  4. PREDNISOLONE [Suspect]
     Active Substance: PREDNISOLONE
     Dosage: 50 MG, DAILY
     Route: 065
     Dates: start: 201803
  5. PREDNISOLONE [Suspect]
     Active Substance: PREDNISOLONE
     Dosage: 12 MG, DAILY
     Route: 065
     Dates: start: 201805
  6. PREDNISOLONE [Suspect]
     Active Substance: PREDNISOLONE
     Dosage: 10 MG, DAILY
     Route: 065
     Dates: start: 201807
  7. PREDNISOLONE [Suspect]
     Active Substance: PREDNISOLONE
     Dosage: 5 MG, DAILY
     Route: 065
     Dates: start: 201809
  8. PREDNISOLONE [Suspect]
     Active Substance: PREDNISOLONE
     Dosage: 2 MG, DAILY
     Route: 065
     Dates: start: 201811
  9. PREDNISOLONE [Suspect]
     Active Substance: PREDNISOLONE
     Dosage: 15 MG, DAILY
     Route: 065
     Dates: start: 202001
  10. PREDNISOLONE [Suspect]
     Active Substance: PREDNISOLONE
     Dosage: 500 MG, DAILY
     Route: 065
     Dates: start: 202005
  11. PREDNISOLONE [Suspect]
     Active Substance: PREDNISOLONE
     Dosage: 10 MG, DAILY
     Route: 065
     Dates: start: 202006
  12. PREDNISOLONE [Suspect]
     Active Substance: PREDNISOLONE
     Dosage: 20 MG, DAILY
     Route: 065
     Dates: start: 201911
  13. PREDNISOLONE [Suspect]
     Active Substance: PREDNISOLONE
     Dosage: 37 MG, DAILY
     Route: 065
     Dates: start: 201910
  14. PREDNISOLONE [Suspect]
     Active Substance: PREDNISOLONE
     Dosage: 1000 MG, DAILY
     Route: 065
     Dates: start: 201909
  15. MYCOPHENOLATE MOFETIL [Suspect]
     Active Substance: MYCOPHENOLATE MOFETIL
     Indication: Inflammation
     Dosage: 2000 MG, DAILY
     Route: 065
     Dates: start: 202004
  16. MYCOPHENOLATE MOFETIL [Suspect]
     Active Substance: MYCOPHENOLATE MOFETIL
     Dosage: 2000 MG, DAILY
     Route: 065
     Dates: start: 202001
  17. MYCOPHENOLATE MOFETIL [Suspect]
     Active Substance: MYCOPHENOLATE MOFETIL
     Dosage: 2000 MG, DAILY
     Route: 065
     Dates: start: 202003
  18. MYCOPHENOLATE MOFETIL [Suspect]
     Active Substance: MYCOPHENOLATE MOFETIL
     Dosage: 2000 MG, DAILY
     Route: 065
     Dates: start: 202005
  19. MYCOPHENOLATE MOFETIL [Suspect]
     Active Substance: MYCOPHENOLATE MOFETIL
     Dosage: 2000 MG, DAILY
     Route: 065
     Dates: start: 201910
  20. MYCOPHENOLATE MOFETIL [Suspect]
     Active Substance: MYCOPHENOLATE MOFETIL
     Dosage: 2000 MG, DAILY
     Route: 065
     Dates: start: 202006
  21. MYCOPHENOLATE MOFETIL [Suspect]
     Active Substance: MYCOPHENOLATE MOFETIL
     Dosage: 2000 MG, DAILY
     Route: 065
     Dates: start: 201911
  22. CYCLOSPORINE [Suspect]
     Active Substance: CYCLOSPORINE
     Dosage: 100 MG, DAILY
     Route: 065
     Dates: start: 201911
  23. CYCLOSPORINE [Suspect]
     Active Substance: CYCLOSPORINE
     Dosage: 50 MG, DAILY
     Route: 065
     Dates: start: 202001
  24. CYCLOSPORINE [Suspect]
     Active Substance: CYCLOSPORINE
     Dosage: 200 MG, DAILY
     Route: 065
     Dates: start: 201910

REACTIONS (3)
  - Off label use [Fatal]
  - Cardiogenic shock [Fatal]
  - Septic shock [Fatal]

NARRATIVE: CASE EVENT DATE: 20200501
